FAERS Safety Report 5701217-6 (Version None)
Quarter: 2008Q2

REPORT INFORMATION
  Report Type: 
  Country: None (occurrence: None)
  Receive Date: 20080410
  Receipt Date: 20080313
  Transmission Date: 20081010
  Serious: No
  Sender: FDA-Public Use
  Company Number: US-BOEHRINGER INGELHEIM GMBH, GERMANY-2008-BP-03886BP

PATIENT
  Age: 86 Year
  Sex: Male

DRUGS (1)
  1. FLOMAX [Suspect]
     Dates: start: 20080228

REACTIONS (1)
  - RESIDUAL URINE [None]
